FAERS Safety Report 11909405 (Version 3)
Quarter: 2016Q4

REPORT INFORMATION
  Report Type: Spontaneous
  Country: US (occurrence: US)
  Receive Date: 20160112
  Receipt Date: 20161108
  Transmission Date: 20170206
  Serious: Yes (Other)
  Sender: FDA-Public Use
  Company Number: US-TEVA-611593USA

PATIENT
  Age: 44 Year
  Sex: Female

DRUGS (1)
  1. ZECUITY [Suspect]
     Active Substance: SUMATRIPTAN SUCCINATE
     Indication: HEADACHE
     Dosage: 6.5 MG / 4 HOURS
     Route: 062
     Dates: start: 20151031, end: 20151031

REACTIONS (11)
  - Application site pruritus [Unknown]
  - Application site paraesthesia [Recovered/Resolved]
  - Application site discolouration [Recovered/Resolved]
  - Application site erythema [Recovered/Resolved]
  - Drug ineffective [Unknown]
  - Application site urticaria [Recovered/Resolved]
  - Application site irritation [Recovered/Resolved]
  - Application site bruise [Recovered/Resolved]
  - Application site scar [Recovered/Resolved]
  - Application site exfoliation [Recovered/Resolved]
  - Application site papules [Recovered/Resolved]

NARRATIVE: CASE EVENT DATE: 20151031
